FAERS Safety Report 6404187-0 (Version None)
Quarter: 2009Q4

REPORT INFORMATION
  Report Type: 
  Country: None (occurrence: None)
  Receive Date: 20091013
  Receipt Date: 20090929
  Transmission Date: 20100525
  Serious: Yes (Hospitalization)
  Sender: FDA-Public Use
  Company Number: DEP_00298_2009

PATIENT
  Age: 39 Year
  Sex: Female

DRUGS (2)
  1. CIPROFLOXACIN [Suspect]
     Indication: PERIDIVERTICULAR ABSCESS
     Dosage: 500 MG, BID, ORAL
     Route: 048
  2. METRONIDAZOLE [Suspect]
     Indication: PERIDIVERTICULAR ABSCESS
     Dosage: 500 MG, TID, ORAL
     Route: 048

REACTIONS (6)
  - HEPATITIS [None]
  - HEPATOTOXICITY [None]
  - LIPOMATOSIS [None]
  - LIVER INJURY [None]
  - PALMAR ERYTHEMA [None]
  - SPLENOMEGALY [None]
